FAERS Safety Report 4416700-3 (Version None)
Quarter: 2004Q3

REPORT INFORMATION
  Report Type: 
  Country: None (occurrence: None)
  Receive Date: 20040805
  Receipt Date: 20040713
  Transmission Date: 20050211
  Serious: Yes (Life-Threatening, Hospitalization, Disabling, Other)
  Sender: FDA-Public Use
  Company Number: US-MERCK-0407USA01161

PATIENT
  Sex: Male
  Weight: 100 kg

DRUGS (5)
  1. CORTICOSTEROIDS (UNSPECIFIED) [Concomitant]
     Route: 065
  2. COUGH, COLD, AND FLU THERAPIES (UNSPECIFIED) [Concomitant]
     Route: 065
  3. FLONASE [Concomitant]
     Route: 065
  4. ADVAIR DISKUS 100/50 [Concomitant]
     Route: 065
  5. SINGULAIR [Suspect]
     Indication: ASTHMA
     Route: 048
     Dates: start: 20040101, end: 20040710

REACTIONS (1)
  - ALLERGIC GRANULOMATOUS ANGIITIS [None]
